FAERS Safety Report 10216496 (Version 1)
Quarter: 2014Q2

REPORT INFORMATION
  Report Type: Spontaneous
  Country: US (occurrence: None)
  Receive Date: 20140603
  Receipt Date: 20140603
  Transmission Date: 20141212
  Serious: Yes (Disabling)
  Sender: FDA-Public Use
  Company Number: None

PATIENT
  Age: 61 Year
  Sex: Female
  Weight: 58.06 kg

DRUGS (4)
  1. MERLE NORMAN^S ^ANTI-AGING COMPLEX EMULSION BROAD SPECTRUM SPF 30^ [Suspect]
  2. ARMO THRYOID [Concomitant]
  3. ANTI-HISTAMINES [Concomitant]
  4. APEXICON CREAM [Concomitant]

REACTIONS (4)
  - Pruritus [None]
  - Local swelling [None]
  - Urticaria [None]
  - Throat tightness [None]
